FAERS Safety Report 4336847-X (Version None)
Quarter: 2004Q1

REPORT INFORMATION
  Report Type: 
  Country: None (occurrence: None)
  Receive Date: 20040329
  Receipt Date: 20040112
  Transmission Date: 20041129
  Serious: No
  Sender: FDA-Public Use
  Company Number: USA040156316

PATIENT
  Age: 67 Year
  Sex: Male
  Weight: 84 kg

DRUGS (7)
  1. STRATTERA [Suspect]
     Indication: OBSESSIVE-COMPULSIVE DISORDER
     Dosage: 25 MG/DAY
     Dates: start: 20040901
  2. DIAZEPAM [Concomitant]
  3. ZOLOFT [Concomitant]
  4. CLARITIN [Concomitant]
  5. RELAFEN [Concomitant]
  6. PROGESTERONE [Concomitant]
  7. GUAIFENESIN [Concomitant]

REACTIONS (2)
  - OEDEMA PERIPHERAL [None]
  - PARAESTHESIA [None]
